FAERS Safety Report 17202491 (Version 1)
Quarter: 2019Q4

REPORT INFORMATION
  Report Type: Spontaneous
  Country: US (occurrence: US)
  Receive Date: 20191204
  Receipt Date: 20191204
  Transmission Date: 20200122
  Serious: Yes (Hospitalization)
  Sender: FDA-Public Use
  Company Number: None

PATIENT
  Sex: Male
  Weight: 121 kg

DRUGS (1)
  1. 5-FLUOROURACIL (5-FU) [Suspect]
     Active Substance: FLUOROURACIL

REACTIONS (4)
  - Ejection fraction decreased [None]
  - Vomiting [None]
  - Chest pain [None]
  - Left ventricular dysfunction [None]

NARRATIVE: CASE EVENT DATE: 20190110
